FAERS Safety Report 5709466-8 (Version None)
Quarter: 2008Q2

REPORT INFORMATION
  Report Type: 
  Country: None (occurrence: None)
  Receive Date: 20080417
  Receipt Date: 20080417
  Transmission Date: 20081010
  Serious: Yes (Other)
  Sender: FDA-Public Use
  Company Number: None

PATIENT
  Age: 20 Month
  Sex: Female
  Weight: 11.7935 kg

DRUGS (1)
  1. MIRALAX [Suspect]
     Indication: HYPERSENSITIVITY
     Dosage: 12GM 1/3 SCOOP BID
     Dates: start: 20080324, end: 20080328

REACTIONS (1)
  - RASH [None]
